FAERS Safety Report 7271197 (Version 4)
Quarter: 2014Q1

REPORT INFORMATION
  Report Type: Spontaneous
  Country: JP (occurrence: JP)
  Receive Date: 20100204
  Receipt Date: 20140130
  Transmission Date: 20141002
  Serious: Yes (Other)
  Sender: FDA-Public Use
  Company Number: PHHY2010JP01931

PATIENT
  Age: 9 Year
  Sex: Female
  Weight: 63 kg

DRUGS (8)
  1. SANDOSTATIN LAR [Suspect]
     Indication: PITUITARY TUMOUR BENIGN
     Dosage: 20 MG, EVERY 28 DAYS
     Route: 030
  2. SOMAVERT [Suspect]
     Indication: PITUITARY TUMOUR BENIGN
     Dosage: 10 MG, DAILY
     Route: 058
  3. SOMAVERT [Suspect]
     Dosage: 15 MG, DAILY
     Route: 058
  4. SOMAVERT [Suspect]
     Dosage: 20 MG, DAILY
     Route: 058
     Dates: start: 200809, end: 200901
  5. POLYETHYLENE GLYCOL [Concomitant]
     Indication: PITUITARY TUMOUR BENIGN
     Dosage: 10 MG, DAILY
     Route: 058
  6. POLYETHYLENE GLYCOL [Concomitant]
     Dosage: 20 MG, PER DAY
     Route: 058
  7. POLYETHYLENE GLYCOL [Concomitant]
  8. POLYETHYLENE GLYCOL [Concomitant]
     Dosage: 40 MG, QW
     Route: 058

REACTIONS (5)
  - Drug-induced liver injury [Recovered/Resolved]
  - Hepatic function abnormal [Recovered/Resolved]
  - Aspartate aminotransferase increased [Recovered/Resolved]
  - Alanine aminotransferase increased [Recovered/Resolved]
  - Neoplasm progression [Unknown]
